FAERS Safety Report 11581885 (Version 1)
Quarter: 2015Q4

REPORT INFORMATION
  Report Type: Spontaneous
  Country: US (occurrence: US)
  Receive Date: 20151001
  Receipt Date: 20151001
  Transmission Date: 20160304
  Serious: No
  Sender: FDA-Public Use
  Company Number: US-ROCHE-673957

PATIENT
  Age: 53 Year
  Sex: Male

DRUGS (2)
  1. RIBAVIRIN. [Suspect]
     Active Substance: RIBAVIRIN
     Indication: HEPATITIS C
     Dosage: DIVIDED DOSES
     Route: 065
  2. PEGASYS [Suspect]
     Active Substance: PEGINTERFERON ALFA-2A
     Indication: HEPATITIS C
     Dosage: PRE FILLED SYRINGE
     Route: 065

REACTIONS (8)
  - Weight decreased [Unknown]
  - Insomnia [Unknown]
  - Nausea [Unknown]
  - Fall [Unknown]
  - Nocturia [Unknown]
  - Stress [Unknown]
  - Rib fracture [Unknown]
  - Fatigue [Unknown]

NARRATIVE: CASE EVENT DATE: 20091016
